FAERS Safety Report 10185697 (Version 1)
Quarter: 2014Q2

REPORT INFORMATION
  Report Type: Spontaneous
  Country: US (occurrence: US)
  Receive Date: 20140521
  Receipt Date: 20140521
  Transmission Date: 20141212
  Serious: No
  Sender: FDA-Public Use
  Company Number: US-ASTRAZENECA-2014SE12721

PATIENT
  Sex: Female

DRUGS (3)
  1. PULMICORT FLEXHALER [Suspect]
     Indication: PNEUMONIA
     Dosage: BID
     Route: 055
  2. PULMICORT FLEXHALER [Suspect]
     Indication: BRONCHITIS
     Dosage: BID
     Route: 055
  3. NEBULIZER [Concomitant]
     Dosage: 4 TIMES A DAY

REACTIONS (2)
  - Malaise [Not Recovered/Not Resolved]
  - Off label use [Unknown]
